FAERS Safety Report 6894832-8 (Version None)
Quarter: 2010Q3

REPORT INFORMATION
  Report Type: 
  Country: None (occurrence: None)
  Receive Date: 20100730
  Receipt Date: 20100730
  Transmission Date: 20110219
  Serious: Yes (Other)
  Sender: FDA-Public Use
  Company Number: None

PATIENT
  Sex: Female
  Weight: 61.6892 kg

DRUGS (1)
  1. LEVAQUIN [Suspect]
     Indication: CELLULITIS
     Dosage: 8 TABLETS 1 A DAY ORAL 500 MG
     Route: 048
     Dates: start: 20100605, end: 20100612

REACTIONS (2)
  - MUSCULOSKELETAL STIFFNESS [None]
  - TENDONITIS [None]
